FAERS Safety Report 9612466 (Version 2)
Quarter: 2013Q4

REPORT INFORMATION
  Report Type: Spontaneous
  Country: GB (occurrence: GB)
  Receive Date: 20131010
  Receipt Date: 20131010
  Transmission Date: 20140711
  Serious: Yes (Other)
  Sender: FDA-Public Use
  Company Number: GB-TEVA-371690ISR

PATIENT
  Age: 44 Year
  Sex: Male

DRUGS (3)
  1. CITALOPRAM [Suspect]
     Indication: OBSESSIVE-COMPULSIVE DISORDER
     Route: 048
     Dates: start: 201112, end: 20121009
  2. PROPRANOLOL [Suspect]
  3. TEGRETOL [Concomitant]

REACTIONS (2)
  - Electrocardiogram QT prolonged [Recovered/Resolved]
  - Heart rate decreased [Unknown]
